FAERS Safety Report 12452849 (Version 2)
Quarter: 2019Q2

REPORT INFORMATION
  Report Type: Spontaneous
  Country: FR (occurrence: FR)
  Receive Date: 20160609
  Receipt Date: 20190626
  Transmission Date: 20190711
  Serious: Yes (Congenital Anomaly, Other)
  Sender: FDA-Public Use
  Company Number: FR-ABBVIE-16P-056-1646891-00

PATIENT
  Sex: Male

DRUGS (1)
  1. DEPAKINE CHRONO [Suspect]
     Active Substance: VALPROATE SODIUM
     Indication: MATERNAL EXPOSURE TIMING UNSPECIFIED
     Route: 064

REACTIONS (33)
  - Lordosis [Unknown]
  - Dysmorphism [Unknown]
  - Birth mark [Unknown]
  - Keratosis pilaris [Unknown]
  - Chest pain [Unknown]
  - Foetal exposure during pregnancy [Unknown]
  - Kyphosis [Unknown]
  - Encopresis [Unknown]
  - Joint laxity [Unknown]
  - Autism spectrum disorder [Unknown]
  - Foetal anticonvulsant syndrome [Unknown]
  - Phobia [Unknown]
  - Dysgraphia [Unknown]
  - Upper respiratory tract infection [Unknown]
  - Enuresis [Unknown]
  - Hypospadias [Unknown]
  - Scoliosis [Unknown]
  - Disturbance in attention [Unknown]
  - Foot deformity [Unknown]
  - Sleep disorder [Unknown]
  - Reading disorder [Unknown]
  - Eye infection [Unknown]
  - Anxiety [Unknown]
  - Back pain [Unknown]
  - Myopia [Unknown]
  - Dysphemia [Unknown]
  - Urethral stenosis [Unknown]
  - Learning disorder [Unknown]
  - Communication disorder [Unknown]
  - Elbow deformity [Unknown]
  - Otitis media [Unknown]
  - Neck pain [Unknown]
  - Abdominal pain [Unknown]
